FAERS Safety Report 5005967-9 (Version None)
Quarter: 2006Q2

REPORT INFORMATION
  Report Type: 
  Country: None (occurrence: None)
  Receive Date: 20060517
  Receipt Date: 20060517
  Transmission Date: 20061013
  Serious: Yes (Hospitalization)
  Sender: FDA-Public Use
  Company Number: None

PATIENT
  Age: 75 Year
  Sex: Male
  Weight: 52.1637 kg

DRUGS (11)
  1. PRIMAXIN [Suspect]
     Indication: SEPSIS
     Dosage: 250 MG Q8H IV
     Route: 042
     Dates: start: 20060508, end: 20060512
  2. PRIMAXIN [Suspect]
     Indication: URINARY TRACT INFECTION
     Dosage: 250 MG Q8H IV
     Route: 042
     Dates: start: 20060508, end: 20060512
  3. ALBUTEROL SULFATE AUTOHALER [Concomitant]
  4. CALMOSEPTINE [Concomitant]
  5. ENOXAPARIN SODIUM [Concomitant]
  6. FERROUS SULFATE LIQ [Concomitant]
  7. IMIPENEM/CILASTIN [Concomitant]
  8. IPRATROPIUM BROMIDE [Concomitant]
  9. METOCLOPRAMIDE [Concomitant]
  10. RANITIDINE [Concomitant]
  11. SIMVASTATIN [Concomitant]

REACTIONS (1)
  - DIARRHOEA [None]
